FAERS Safety Report 6877543-4 (Version None)
Quarter: 2010Q3

REPORT INFORMATION
  Report Type: 
  Country: None (occurrence: None)
  Receive Date: 20100727
  Receipt Date: 20091202
  Transmission Date: 20110219
  Serious: No
  Sender: FDA-Public Use
  Company Number: US-ABBOTT-09P-163-0613410-00

PATIENT
  Sex: Male
  Weight: 74.91 kg

DRUGS (2)
  1. SYNTHROID [Suspect]
     Indication: HYPOTHYROIDISM
     Dates: start: 20090801, end: 20091202
  2. PROPECIA [Concomitant]
     Indication: ALOPECIA
     Dates: start: 20040101

REACTIONS (2)
  - ALOPECIA [None]
  - TRICHORRHEXIS [None]
